FAERS Safety Report 7612226-4 (Version None)
Quarter: 2011Q3

REPORT INFORMATION
  Report Type: 
  Country: None (occurrence: None)
  Receive Date: 20110715
  Receipt Date: 20110707
  Transmission Date: 20111222
  Serious: Yes (Other)
  Sender: FDA-Public Use
  Company Number: US-ABBOTT-11P-163-0837386-00

PATIENT
  Sex: Female
  Weight: 81.72 kg

DRUGS (6)
  1. CALCIUM CARBONATE [Concomitant]
     Indication: MINERAL SUPPLEMENTATION
  2. FOLIC ACID [Concomitant]
     Indication: VITAMIN SUPPLEMENTATION
  3. HUMIRA [Suspect]
     Indication: PSORIATIC ARTHROPATHY
     Dates: start: 20070101, end: 20110301
  4. HUMIRA [Suspect]
     Indication: PSORIASIS
     Dates: start: 20110401
  5. METHOTREXATE [Concomitant]
     Indication: PSORIATIC ARTHROPATHY
  6. VITAMIN D [Concomitant]
     Indication: VITAMIN SUPPLEMENTATION

REACTIONS (3)
  - ARTHRALGIA [None]
  - CATARACT [None]
  - JOINT EFFUSION [None]
